FAERS Safety Report 18348764 (Version 2)
Quarter: 2020Q4

REPORT INFORMATION
  Report Type: Spontaneous
  Country: EC (occurrence: EC)
  Receive Date: 20201006
  Receipt Date: 20201016
  Transmission Date: 20210114
  Serious: Yes (Death, Hospitalization, Other)
  Sender: FDA-Public Use
  Company Number: EC-ADVANZ PHARMA-202003002992

PATIENT

DRUGS (5)
  1. HYDROXYCHLOROQUINE [Suspect]
     Active Substance: HYDROXYCHLOROQUINE
     Indication: PRODUCT USE IN UNAPPROVED INDICATION
  2. BLOPRESS [Concomitant]
     Active Substance: CANDESARTAN CILEXETIL
     Dosage: UNK
  3. COLUFASE [Concomitant]
     Dosage: UNK
  4. HYDROXYCHLOROQUINE [Suspect]
     Active Substance: HYDROXYCHLOROQUINE
     Indication: CORONAVIRUS INFECTION
     Dosage: 2 DOSAGE FORM, Q12H, TABLET
     Route: 065
     Dates: start: 20200327, end: 20200329
  5. AZITROMYCIN [Concomitant]
     Active Substance: AZITHROMYCIN ANHYDROUS
     Dosage: UNK

REACTIONS (13)
  - COVID-19 [Fatal]
  - SARS-CoV-2 test positive [Fatal]
  - Anosmia [Fatal]
  - Off label use [Unknown]
  - Asthenia [Fatal]
  - Ageusia [Fatal]
  - Respiratory rate increased [Fatal]
  - Pyrexia [Fatal]
  - Pneumonia [Fatal]
  - Cough [Fatal]
  - Lung opacity [Fatal]
  - Dyspnoea [Fatal]
  - Decreased appetite [Fatal]

NARRATIVE: CASE EVENT DATE: 2020
